FAERS Safety Report 9295598 (Version 1)
Quarter: 2013Q2

REPORT INFORMATION
  Report Type: Spontaneous
  Country: US (occurrence: US)
  Receive Date: 20130517
  Receipt Date: 20130517
  Transmission Date: 20140414
  Serious: Yes (Hospitalization)
  Sender: FDA-Public Use
  Company Number: US-JNJFOC-20130506413

PATIENT
  Age: 69 Year
  Sex: Female
  Weight: 83.92 kg

DRUGS (7)
  1. TOPAMAX [Suspect]
     Indication: SCIATICA
     Route: 048
  2. PERCOCET [Suspect]
     Indication: SCIATICA
     Route: 065
  3. MIRALAX [Suspect]
     Indication: PRODUCT USED FOR UNKNOWN INDICATION
     Route: 065
  4. ASPIRIN [Suspect]
     Indication: CEREBROVASCULAR ACCIDENT
     Route: 048
  5. VITAMIN D3 [Suspect]
     Indication: PRODUCT USED FOR UNKNOWN INDICATION
     Route: 065
  6. LIPITOR [Suspect]
     Indication: BLOOD CHOLESTEROL INCREASED
     Route: 065
  7. LIPITOR [Suspect]
     Indication: BLOOD CHOLESTEROL INCREASED
     Route: 065

REACTIONS (2)
  - Intestinal obstruction [Unknown]
  - Off label use [Unknown]
